FAERS Safety Report 4370255-0 (Version None)
Quarter: 2004Q2

REPORT INFORMATION
  Report Type: 
  Country: None (occurrence: None)
  Receive Date: 20040603
  Receipt Date: 20040330
  Transmission Date: 20050107
  Serious: No
  Sender: FDA-Public Use
  Company Number: US-BRISTOL-MYERS SQUIBB COMPANY-12546016

PATIENT
  Age: 17 Year
  Sex: Male

DRUGS (4)
  1. ABILIFY [Suspect]
     Indication: SCHIZOPHRENIA
     Route: 048
     Dates: start: 20040225, end: 20040227
  2. STRATTERA [Concomitant]
  3. CELEXA [Concomitant]
  4. WELLBUTRIN [Concomitant]

REACTIONS (1)
  - VISION BLURRED [None]
